FAERS Safety Report 18754683 (Version 1)
Quarter: 2021Q1

REPORT INFORMATION
  Report Type: Spontaneous
  Country: US (occurrence: US)
  Receive Date: 20210119
  Receipt Date: 20210119
  Transmission Date: 20210419
  Serious: Yes (Hospitalization, Other)
  Sender: FDA-Public Use
  Company Number: US-AUROBINDO-AUR-APL-2021-002136

PATIENT
  Age: 70 Year
  Sex: Female

DRUGS (2)
  1. IBUPROFEN. [Suspect]
     Active Substance: IBUPROFEN
     Indication: PRODUCT USED FOR UNKNOWN INDICATION
     Dosage: UNK
     Route: 065
  2. PEMBROLIZUMAB. [Suspect]
     Active Substance: PEMBROLIZUMAB
     Indication: LUNG ADENOCARCINOMA STAGE IV
     Dosage: UNK 4 CYCLICAL
     Route: 065

REACTIONS (5)
  - Tubulointerstitial nephritis [Recovered/Resolved]
  - Decreased appetite [Unknown]
  - Oedema peripheral [Unknown]
  - Acute kidney injury [Recovered/Resolved]
  - Nausea [Unknown]
